FAERS Safety Report 8990282 (Version 3)
Quarter: 2013Q2

REPORT INFORMATION
  Report Type: Spontaneous
  Country: US (occurrence: US)
  Receive Date: 20121228
  Receipt Date: 20130426
  Transmission Date: 20140414
  Serious: No
  Sender: FDA-Public Use
  Company Number: US-009507513-1212USA008855

PATIENT
  Age: 67 Year
  Sex: Male

DRUGS (7)
  1. REBETOL [Suspect]
     Dosage: 1200 MG, A DAY
     Route: 048
     Dates: start: 20121019
  2. REBETOL [Suspect]
     Dosage: 3 DF, QD
     Route: 048
  3. REBETOL [Suspect]
     Dosage: 200 MG, A DAY
     Route: 048
  4. REBETOL [Suspect]
     Dosage: 1000 MG,
     Route: 048
  5. VICTRELIS [Suspect]
     Indication: HEPATITIS C
     Dosage: UNK
     Route: 048
     Dates: start: 20121116
  6. PEGASYS [Suspect]
     Indication: HEPATITIS C
     Dosage: UNK
     Dates: start: 20121019
  7. PROCRIT [Concomitant]

REACTIONS (12)
  - Fatigue [Unknown]
  - Haemoglobin decreased [Unknown]
  - Anaemia [Unknown]
  - Somnolence [Unknown]
  - Fatigue [Unknown]
  - Anaemia [Unknown]
  - Haemoglobin decreased [Unknown]
  - Drug ineffective [Unknown]
  - Therapeutic response decreased [Unknown]
  - Hypotension [Unknown]
  - Dizziness [Unknown]
  - White blood cell count decreased [Unknown]
